FAERS Safety Report 13406605 (Version 1)
Quarter: 2017Q2

REPORT INFORMATION
  Report Type: Spontaneous
  Country: US (occurrence: US)
  Receive Date: 20170405
  Receipt Date: 20170405
  Transmission Date: 20170830
  Serious: No
  Sender: FDA-Public Use
  Company Number: US-SA-2016SA118055

PATIENT
  Age: 71 Year
  Sex: Male

DRUGS (1)
  1. ALLEGRA [Suspect]
     Active Substance: FEXOFENADINE HYDROCHLORIDE
     Indication: UPPER-AIRWAY COUGH SYNDROME
     Dosage: 3 1/2 MLS TOTAL
     Route: 048

REACTIONS (3)
  - Productive cough [Unknown]
  - Rhinorrhoea [Unknown]
  - Extra dose administered [Unknown]
